FAERS Safety Report 16806868 (Version 10)
Quarter: 2022Q1

REPORT INFORMATION
  Report Type: Report from Study
  Country: DE (occurrence: DE)
  Receive Date: 20190913
  Receipt Date: 20220131
  Transmission Date: 20220423
  Serious: Yes (Other)
  Sender: FDA-Public Use
  Company Number: DE-002147023-PHHY2019DE091265

PATIENT
  Age: 62 Year
  Sex: Female
  Weight: 95.4 kg

DRUGS (4)
  1. HYDROMORPHONE HYDROCHLORIDE [Suspect]
     Active Substance: HYDROMORPHONE HYDROCHLORIDE
     Indication: Product used for unknown indication
     Dosage: UNK
     Route: 065
  2. HYDROMORPHONE HYDROCHLORIDE [Suspect]
     Active Substance: HYDROMORPHONE HYDROCHLORIDE
     Dosage: UNK
     Route: 065
  3. FULVESTRANT [Suspect]
     Active Substance: FULVESTRANT
     Indication: Breast cancer metastatic
     Dosage: 500 MG, Q4W
     Route: 030
     Dates: start: 20190319
  4. AFINITOR [Concomitant]
     Active Substance: EVEROLIMUS
     Indication: Breast cancer metastatic
     Dosage: 5 MG, DAILY
     Route: 048
     Dates: start: 20211102

REACTIONS (7)
  - Thrombocytopenia [Not Recovered/Not Resolved]
  - Procedural pain [Recovered/Resolved]
  - Hypokalaemia [Recovered/Resolved]
  - Sleep disorder [Unknown]
  - Weight decreased [Unknown]
  - Gamma-glutamyltransferase increased [Recovered/Resolved]
  - Nausea [Not Recovered/Not Resolved]

NARRATIVE: CASE EVENT DATE: 20190409
